FAERS Safety Report 10570614 (Version 2)
Quarter: 2014Q4

REPORT INFORMATION
  Report Type: Spontaneous
  Country: US (occurrence: US)
  Receive Date: 20141107
  Receipt Date: 20141107
  Transmission Date: 20150529
  Serious: Yes (Other)
  Sender: FDA-Public Use
  Company Number: US-ASTELLAS-2014US006387

PATIENT
  Sex: Male

DRUGS (1)
  1. ADENOSCAN [Suspect]
     Active Substance: ADENOSINE
     Indication: PRODUCT USED FOR UNKNOWN INDICATION
     Dosage: 140 MG/KG/MIN TO 53 MG, OVER 4 MIN
     Route: 065
     Dates: start: 20080505

REACTIONS (4)
  - Chest discomfort [Unknown]
  - Ventricular tachycardia [Unknown]
  - Dyspnoea [Unknown]
  - Nausea [Unknown]

NARRATIVE: CASE EVENT DATE: 2008
